FAERS Safety Report 23090653 (Version 1)
Quarter: 2023Q4

REPORT INFORMATION
  Report Type: Spontaneous
  Country: US (occurrence: US)
  Receive Date: 20231020
  Receipt Date: 20231020
  Transmission Date: 20240110
  Serious: Yes (Other)
  Sender: FDA-Public Use
  Company Number: US-SANOFI-01804481

PATIENT
  Sex: Male
  Weight: 93 kg

DRUGS (1)
  1. CEREZYME [Suspect]
     Active Substance: IMIGLUCERASE
     Indication: Gaucher^s disease type I
     Dosage: 5600 IU (14 VIALS), QOW
     Route: 042
     Dates: start: 20030425

REACTIONS (1)
  - Cardiac operation [Unknown]
